FAERS Safety Report 10860748 (Version 7)
Quarter: 2018Q1

REPORT INFORMATION
  Report Type: Report from Study
  Country: DE (occurrence: DE)
  Receive Date: 20150224
  Receipt Date: 20180129
  Transmission Date: 20180508
  Serious: Yes (Hospitalization)
  Sender: FDA-Public Use
  Company Number: PHHY2015DE019452

PATIENT
  Age: 31 Year
  Sex: Female

DRUGS (20)
  1. EMSELEX [Concomitant]
     Active Substance: DARIFENACIN HYDROBROMIDE
     Indication: PRODUCT USED FOR UNKNOWN INDICATION
     Dosage: 7.5 MG, QD (0-0-1)
     Route: 048
  2. ACICLOVIR [Concomitant]
     Active Substance: ACYCLOVIR
     Dosage: UNK
     Route: 065
     Dates: start: 20150924, end: 20151024
  3. RANITIDIN [Concomitant]
     Active Substance: RANITIDINE HYDROCHLORIDE
     Indication: PROPHYLAXIS
     Dosage: UNK
     Route: 065
     Dates: start: 20140820, end: 20140822
  4. METHYLPREDNISOLONE. [Concomitant]
     Active Substance: METHYLPREDNISOLONE
     Dosage: UNK
     Route: 065
     Dates: start: 20150924, end: 20150926
  5. LEMTRADA [Suspect]
     Active Substance: ALEMTUZUMAB
     Indication: PRODUCT USED FOR UNKNOWN INDICATION
     Route: 041
  6. ZOPICLONE [Concomitant]
     Active Substance: ZOPICLONE
     Indication: PRODUCT USED FOR UNKNOWN INDICATION
     Dosage: 7.5 MG, UNK
     Route: 065
  7. FENISTIL [Concomitant]
     Active Substance: DIMETHINDENE
     Indication: PROPHYLAXIS
     Dosage: UNK
     Route: 065
     Dates: start: 20140820, end: 20140822
  8. PARACETAMOL [Concomitant]
     Active Substance: ACETAMINOPHEN
     Indication: PROPHYLAXIS
     Dosage: UNK
     Route: 065
     Dates: start: 20140820, end: 20140822
  9. PARACETAMOL [Concomitant]
     Active Substance: ACETAMINOPHEN
     Dosage: UNK
     Route: 065
     Dates: start: 20150924, end: 20150926
  10. GILENYA [Suspect]
     Active Substance: FINGOLIMOD HYDROCHLORIDE
     Indication: MULTIPLE SCLEROSIS
     Dosage: 0.5 MG, QD
     Route: 048
     Dates: start: 20130430, end: 20140510
  11. L-THYROXINE [Concomitant]
     Active Substance: LEVOTHYROXINE
     Indication: PRODUCT USED FOR UNKNOWN INDICATION
     Dosage: 50 UG, QD (1-0-0)
     Route: 048
     Dates: start: 2010
  12. FLUOXETINE [Concomitant]
     Active Substance: FLUOXETINE HYDROCHLORIDE
     Indication: PRODUCT USED FOR UNKNOWN INDICATION
     Dosage: 40 MG, (2-0-0 )
     Route: 048
     Dates: start: 20130430
  13. CYMBALTA [Concomitant]
     Active Substance: DULOXETINE HYDROCHLORIDE
     Indication: PRODUCT USED FOR UNKNOWN INDICATION
     Dosage: 60 MG, QD (1-0-0 )
     Route: 065
  14. SPASMEX (TROSPIUM CHLORIDE) [Concomitant]
     Active Substance: TROSPIUM CHLORIDE
     Indication: PRODUCT USED FOR UNKNOWN INDICATION
     Route: 065
  15. EMSELEX [Concomitant]
     Active Substance: DARIFENACIN HYDROBROMIDE
     Dosage: 15 MG, QD (1-0-0)
     Route: 048
  16. FLUOXETINE [Concomitant]
     Active Substance: FLUOXETINE HYDROCHLORIDE
     Dosage: 40 MG, 1-0-0
     Route: 048
  17. ACICLOVIR [Concomitant]
     Active Substance: ACYCLOVIR
     Indication: PROPHYLAXIS
     Dosage: UNK
     Route: 065
     Dates: start: 20140820, end: 20140830
  18. FENISTIL [Concomitant]
     Active Substance: DIMETHINDENE
     Dosage: UNK
     Route: 065
     Dates: start: 20150924, end: 20150926
  19. RANITIDIN [Concomitant]
     Active Substance: RANITIDINE HYDROCHLORIDE
     Dosage: UNK
     Route: 065
     Dates: start: 20150924, end: 20150926
  20. METHYLPREDNISOLONE. [Concomitant]
     Active Substance: METHYLPREDNISOLONE
     Indication: PROPHYLAXIS
     Dosage: UNK
     Route: 065
     Dates: start: 20140820, end: 20140822

REACTIONS (42)
  - Gait disturbance [Unknown]
  - Paresis [Unknown]
  - Visual impairment [Unknown]
  - Blood albumin increased [Unknown]
  - Blood lactate dehydrogenase increased [Unknown]
  - Borderline personality disorder [Unknown]
  - Muscle spasticity [Unknown]
  - CSF test abnormal [Unknown]
  - Clonus [Unknown]
  - Epilepsy [Recovered/Resolved]
  - Extensor plantar response [Unknown]
  - Saccadic eye movement [Unknown]
  - Speech disorder [Unknown]
  - Depressed level of consciousness [Recovered/Resolved]
  - White blood cell count decreased [Unknown]
  - Affect lability [Unknown]
  - Respiratory failure [Unknown]
  - Dyskinesia [Recovered/Resolved]
  - Limb discomfort [Unknown]
  - Central nervous system lesion [Unknown]
  - Influenza like illness [Recovered/Resolved]
  - Body temperature increased [Unknown]
  - Visual pathway disorder [Unknown]
  - Hypoacusis [Unknown]
  - Heart rate decreased [Unknown]
  - High density lipoprotein increased [Unknown]
  - Myoclonus [Unknown]
  - Pyramidal tract syndrome [Unknown]
  - Mean cell volume decreased [Unknown]
  - Blood cholesterol increased [Unknown]
  - Aspartate aminotransferase increased [Recovered/Resolved]
  - Hyperreflexia [Unknown]
  - Coma [Recovered/Resolved]
  - Monoparesis [Unknown]
  - Haematocrit decreased [Unknown]
  - Mean cell haemoglobin decreased [Unknown]
  - Depression [Unknown]
  - Disturbance in attention [Unknown]
  - Hypoaesthesia [Unknown]
  - Haemoglobin decreased [Unknown]
  - Pain [Recovered/Resolved]
  - Influenza like illness [Recovered/Resolved]

NARRATIVE: CASE EVENT DATE: 20130604
